FAERS Safety Report 8845949 (Version 1)
Quarter: 2012Q4

REPORT INFORMATION
  Report Type: 
  Country: GR (occurrence: GR)
  Receive Date: 20121017
  Receipt Date: 20121017
  Transmission Date: 20130627
  Serious: Yes (Hospitalization, Other)
  Sender: FDA-Public Use
  Company Number: GR-ELI_LILLY_AND_COMPANY-GR201210000977

PATIENT
  Age: 51 Year
  Sex: Male

DRUGS (5)
  1. ZYPADHERA [Suspect]
     Indication: BIPOLAR I DISORDER
     Dosage: 405 mg, monthly (1/M)
     Route: 030
     Dates: start: 2010
  2. LADOSE [Concomitant]
     Indication: BIPOLAR DISORDER
     Dosage: 20 mg, tid
     Route: 048
  3. LAMOTRIGINE [Concomitant]
     Indication: BIPOLAR DISORDER
     Dosage: 100 mg, qd
     Route: 048
  4. DEPAKINE CHRONO [Concomitant]
     Indication: BIPOLAR DISORDER
     Dosage: 500 mg, tid
     Route: 048
  5. AKINETON                           /00079501/ [Concomitant]
     Indication: BIPOLAR DISORDER
     Dosage: 4 mg, qd
     Route: 048

REACTIONS (5)
  - Syncope [Recovered/Resolved]
  - Confusional state [Recovered/Resolved]
  - Disorientation [Recovered/Resolved]
  - Somnolence [Recovered/Resolved]
  - Memory impairment [Recovered/Resolved]
